FAERS Safety Report 18006057 (Version 1)
Quarter: 2020Q3

REPORT INFORMATION
  Report Type: Spontaneous
  Country: US (occurrence: US)
  Receive Date: 20200709
  Receipt Date: 20200709
  Transmission Date: 20201103
  Serious: No
  Sender: FDA-Public Use
  Company Number: None

PATIENT

DRUGS (2)
  1. TROPICAMIDE. [Suspect]
     Active Substance: TROPICAMIDE
     Route: 047
  2. PHENYLPHRINE HYDROCHLORIDE OPHT [Suspect]
     Active Substance: PHENYLEPHRINE HYDROCHLORIDE
     Route: 047

REACTIONS (2)
  - Product packaging confusion [None]
  - Intercepted product storage error [None]
